FAERS Safety Report 18058389 (Version 1)
Quarter: 2020Q3

REPORT INFORMATION
  Report Type: Spontaneous
  Country: US (occurrence: US)
  Receive Date: 20200722
  Receipt Date: 20200722
  Transmission Date: 20201103
  Serious: No
  Sender: FDA-Public Use
  Company Number: None

PATIENT
  Sex: Female

DRUGS (1)
  1. NINLARO [Suspect]
     Active Substance: IXAZOMIB CITRATE
     Indication: PLASMA CELL MYELOMA
     Route: 048
     Dates: start: 202003

REACTIONS (6)
  - Paraesthesia [None]
  - Burning sensation [None]
  - Diarrhoea [None]
  - Pyrexia [None]
  - White blood cell count decreased [None]
  - Skin discolouration [None]
